FAERS Safety Report 7509099-7 (Version None)
Quarter: 2011Q2

REPORT INFORMATION
  Report Type: 
  Country: None (occurrence: None)
  Receive Date: 20110519
  Receipt Date: 20110511
  Transmission Date: 20111010
  Serious: Yes (Hospitalization)
  Sender: FDA-Public Use
  Company Number: 2011SP021856

PATIENT
  Age: 55 Year
  Sex: Female

DRUGS (6)
  1. TERCIAN (CYAMEMAZINE) [Suspect]
     Indication: PRODUCT USED FOR UNKNOWN INDICATION
     Dosage: 10 GTT, QD, PO
     Route: 048
     Dates: end: 20110321
  2. MOVICOL (MOVICOL 01749801/) [Suspect]
     Indication: PRODUCT USED FOR UNKNOWN INDICATION
     Dosage: 2 DF. QD. PO
     Route: 048
     Dates: end: 20110317
  3. MIRTAZAPINE [Suspect]
     Indication: PRODUCT USED FOR UNKNOWN INDICATION
     Dosage: 15 MG, TID, PO
     Route: 048
     Dates: end: 20110321
  4. CLOZAPINE [Suspect]
     Indication: PRODUCT USED FOR UNKNOWN INDICATION
     Dosage: 100 MG, QID, PO
     Route: 048
     Dates: end: 20110414
  5. ATARAX [Suspect]
     Indication: PRODUCT USED FOR UNKNOWN INDICATION
     Dosage: 12.5 MG, QID, PO
     Route: 048
     Dates: end: 20110321
  6. ACETAMINOPHEN AND TRAMADOL HCL [Suspect]
     Indication: PRODUCT USED FOR UNKNOWN INDICATION
     Dosage: 3 DF, QD, PO
     Route: 048
     Dates: end: 20110317

REACTIONS (16)
  - HYPERGLYCAEMIA [None]
  - ANAEMIA [None]
  - DIABETIC HYPEROSMOLAR COMA [None]
  - HYPERNATRAEMIA [None]
  - ALTERED STATE OF CONSCIOUSNESS [None]
  - ESCHERICHIA TEST POSITIVE [None]
  - TUBULOINTERSTITIAL NEPHRITIS [None]
  - DEHYDRATION [None]
  - URINE OSMOLARITY DECREASED [None]
  - DYSPNOEA [None]
  - MYOCLONUS [None]
  - POLYDIPSIA [None]
  - URINARY TRACT INFECTION [None]
  - ABNORMAL BEHAVIOUR [None]
  - DIABETES INSIPIDUS [None]
  - RENAL FAILURE ACUTE [None]
